FAERS Safety Report 7851819-6 (Version None)
Quarter: 2011Q4

REPORT INFORMATION
  Report Type: 
  Country: None (occurrence: None)
  Receive Date: 20111026
  Receipt Date: 20110920
  Transmission Date: 20120403
  Serious: No
  Sender: FDA-Public Use
  Company Number: US-BAYER-2011-089891

PATIENT

DRUGS (2)
  1. ALEVE (CAPLET) [Suspect]
     Route: 048
  2. HYALURONIC ACID [Suspect]

REACTIONS (1)
  - HYPERSENSITIVITY [None]
